FAERS Safety Report 25587585 (Version 1)
Quarter: 2025Q3

REPORT INFORMATION
  Report Type: Spontaneous
  Country: CN (occurrence: CN)
  Receive Date: 20250721
  Receipt Date: 20250721
  Transmission Date: 20251020
  Serious: Yes (Death, Other)
  Sender: ADMA BIOLOGICS
  Company Number: CN-ADMA BIOLOGICS INC.-CN-2025ADM000211

PATIENT
  Age: 59 Year
  Sex: Male

DRUGS (6)
  1. HUMAN IMMUNOGLOBULIN G [Suspect]
     Active Substance: HUMAN IMMUNOGLOBULIN G
     Indication: Herpes simplex encephalitis
     Dosage: 0.4 GRAM PER KILOGRAM, QD
     Route: 042
  2. METHYLPREDNISOLONE SODIUM SUCCINATE [Suspect]
     Active Substance: METHYLPREDNISOLONE SODIUM SUCCINATE
     Indication: Herpes simplex encephalitis
     Dosage: 80 MG, QD FOR 5 DAYS
     Route: 042
  3. ACYCLOVIR [Suspect]
     Active Substance: ACYCLOVIR
     Indication: Antiviral treatment
     Route: 042
  4. MEROPENEM [Suspect]
     Active Substance: MEROPENEM
     Indication: Anti-infective therapy
     Route: 065
  5. MANNITOL [Suspect]
     Active Substance: MANNITOL
     Indication: Dehydration
     Route: 065
  6. EDARAVONE [Suspect]
     Active Substance: EDARAVONE
     Indication: Antioxidant therapy
     Route: 065

REACTIONS (7)
  - Cerebral haemorrhage [Fatal]
  - Subdural haematoma [Fatal]
  - Necrosis [Fatal]
  - Pneumonia [Fatal]
  - Seizure [Fatal]
  - Deep vein thrombosis [Fatal]
  - Off label use [Unknown]
